FAERS Safety Report 25835702 (Version 1)
Quarter: 2025Q3

REPORT INFORMATION
  Report Type: Spontaneous
  Country: EU (occurrence: EU)
  Receive Date: 20250923
  Receipt Date: 20250923
  Transmission Date: 20251020
  Serious: Yes (Other)
  Sender: MYLAN
  Company Number: EU-MYLANLABS-2025M1079335

PATIENT
  Age: 82 Year

DRUGS (3)
  1. IRON SUCROSE [Suspect]
     Active Substance: IRON SUCROSE
     Indication: Iron deficiency
  2. HYDROXYUREA [Concomitant]
     Active Substance: HYDROXYUREA
     Indication: Essential thrombocythaemia
  3. RUXOLITINIB [Concomitant]
     Active Substance: RUXOLITINIB
     Indication: Product used for unknown indication

REACTIONS (2)
  - Cytopenia [Unknown]
  - Platelet count abnormal [Unknown]
